FAERS Safety Report 7716160-0 (Version None)
Quarter: 2011Q3

REPORT INFORMATION
  Report Type: 
  Country: None (occurrence: None)
  Receive Date: 20110829
  Receipt Date: 20110817
  Transmission Date: 20111222
  Serious: Yes (Other)
  Sender: FDA-Public Use
  Company Number: FR-ELI_LILLY_AND_COMPANY-FR201108005551

PATIENT
  Sex: Male

DRUGS (3)
  1. ALLOPURINOL [Concomitant]
     Dosage: 5 MG, UNK
     Route: 048
     Dates: start: 20110211
  2. ZYPREXA [Suspect]
     Dosage: 5 MG, QD
     Route: 048
     Dates: start: 20110211, end: 20110217
  3. ZYPREXA [Suspect]
     Dosage: 10 MG, QD
     Route: 048
     Dates: start: 20110131, end: 20110211

REACTIONS (2)
  - WEIGHT INCREASED [None]
  - OEDEMA [None]
